FAERS Safety Report 8841128 (Version 1)
Quarter: 2012Q4

REPORT INFORMATION
  Report Type: 
  Country: PT (occurrence: PT)
  Receive Date: 20121016
  Receipt Date: 20121016
  Transmission Date: 20130627
  Serious: Yes (Disabling)
  Sender: FDA-Public Use
  Company Number: PT-MERCK-1210PRT002242

PATIENT
  Age: 63 Year
  Sex: Female

DRUGS (2)
  1. PEGINTRON [Suspect]
     Indication: HEPATITIS C
     Dosage: UNK
     Dates: start: 201205
  2. REBETOL [Suspect]
     Indication: HEPATITIS C

REACTIONS (2)
  - Arthritis [Unknown]
  - Urinary tract infection [Unknown]
